FAERS Safety Report 6571320-X (Version None)
Quarter: 2010Q1

REPORT INFORMATION
  Report Type: 
  Country: None (occurrence: None)
  Receive Date: 20100201
  Receipt Date: 20100120
  Transmission Date: 20100710
  Serious: Yes (Death, Other)
  Sender: FDA-Public Use
  Company Number: SPV1-2010-00105

PATIENT
  Age: 12 Year
  Sex: Male
  Weight: 31 kg

DRUGS (3)
  1. ELAPRASE [Suspect]
     Indication: MUCOPOLYSACCHARIDOSIS II
     Dosage: 18 MG, 1X/WEEK,
     Route: 042
     Dates: start: 20070711
  2. MIRALAX [Concomitant]
  3. TOPICAL PRODUCTS FOR JOINT AND MUSCULAR PAIN [Concomitant]

REACTIONS (2)
  - OBSTRUCTIVE AIRWAYS DISORDER [None]
  - RESPIRATORY FAILURE [None]
